FAERS Safety Report 6923910-X (Version None)
Quarter: 2010Q3

REPORT INFORMATION
  Report Type: 
  Country: None (occurrence: None)
  Receive Date: 20100813
  Receipt Date: 20100602
  Transmission Date: 20110219
  Serious: No
  Sender: FDA-Public Use
  Company Number: US-BRISTOL-MYERS SQUIBB COMPANY-15131303

PATIENT
  Age: 54 Year
  Sex: Male
  Weight: 82 kg

DRUGS (4)
  1. REYATAZ [Suspect]
     Indication: HIV INFECTION
  2. TRUVADA [Concomitant]
  3. RITONAVIR [Concomitant]
  4. SUSTIVA [Concomitant]

REACTIONS (1)
  - NEPHROLITHIASIS [None]
